FAERS Safety Report 17810537 (Version 3)
Quarter: 2020Q2

REPORT INFORMATION
  Report Type: Spontaneous
  Country: DE (occurrence: DE)
  Receive Date: 20200520
  Receipt Date: 20200618
  Transmission Date: 20200714
  Serious: Yes (Hospitalization, Other)
  Sender: FDA-Public Use
  Company Number: DE-AUROBINDO-AUR-APL-2020-020970

PATIENT
  Age: 60 Year
  Sex: Male
  Weight: 107 kg

DRUGS (7)
  1. FLECAINIDE ACETATE PUREN 100 MG TABLETS [Suspect]
     Active Substance: FLECAINIDE ACETATE
     Dosage: 100 MILLIGRAM, TWO TIMES A DAY
     Route: 048
     Dates: start: 20200223, end: 20200317
  2. BISOPROLOL [Concomitant]
     Active Substance: BISOPROLOL
     Dosage: 2.5 MILLIGRAM, TWO TIMES A DAY
     Route: 048
     Dates: start: 20200225
  3. ELIQUIS [Concomitant]
     Active Substance: APIXABAN
     Indication: ANTICOAGULANT THERAPY
     Dosage: 5 MILLIGRAM, TWO TIMES A DAY
     Route: 048
     Dates: start: 20200225
  4. PAROXETINE. [Concomitant]
     Active Substance: PAROXETINE
     Indication: PANIC ATTACK
     Dosage: 20 MILLIGRAM
     Route: 048
     Dates: start: 202001
  5. FLECAINIDE ACETATE PUREN 100 MG TABLETS [Suspect]
     Active Substance: FLECAINIDE ACETATE
     Dosage: 100 MILLIGRAM, 3 TIMES A DAY
     Route: 048
     Dates: start: 20200222, end: 20200222
  6. FLECAINIDE ACETATE PUREN 100 MG TABLETS [Suspect]
     Active Substance: FLECAINIDE ACETATE
     Indication: ATRIAL FIBRILLATION
     Dosage: 2X100 MG IF NEEDED
     Route: 048
     Dates: start: 2017, end: 20200221
  7. BISOPROLOL [Concomitant]
     Active Substance: BISOPROLOL
     Indication: HYPERTENSION
     Dosage: 2.5 MILLIGRAM
     Route: 048
     Dates: start: 2017, end: 20200224

REACTIONS (7)
  - Non-Hodgkin^s lymphoma [Unknown]
  - Laryngitis [Not Recovered/Not Resolved]
  - Metastasis [Unknown]
  - Lymphadenopathy [Not Recovered/Not Resolved]
  - Surgery [Unknown]
  - Drug ineffective [Unknown]
  - Lymph node pain [Not Recovered/Not Resolved]

NARRATIVE: CASE EVENT DATE: 202003
